FAERS Safety Report 21635331 (Version 2)
Quarter: 2022Q4

REPORT INFORMATION
  Report Type: Spontaneous
  Country: US (occurrence: US)
  Receive Date: 20221123
  Receipt Date: 20221215
  Transmission Date: 20230113
  Serious: Yes (Other)
  Sender: FDA-Public Use
  Company Number: US-NOVOPROD-918853

PATIENT
  Sex: Female

DRUGS (2)
  1. NOVOLOG [Suspect]
     Active Substance: INSULIN ASPART
     Indication: Type 1 diabetes mellitus
     Dosage: 19 IU, QD (7 UNITS INTHE MORNING 7 UNITS AT LUNCH AND 5 AT DINNER)
     Route: 058
     Dates: start: 2003
  2. LEVEMIR [Suspect]
     Active Substance: INSULIN DETEMIR
     Indication: Type 1 diabetes mellitus
     Dosage: 7 UNITS QAM AND 2 UNITS QPM
     Route: 058

REACTIONS (1)
  - Diabetes mellitus inadequate control [Not Recovered/Not Resolved]
